FAERS Safety Report 9983242 (Version 1)
Quarter: 2014Q1

REPORT INFORMATION
  Report Type: Report from Study
  Country: US (occurrence: US)
  Receive Date: 20140307
  Receipt Date: 20140307
  Transmission Date: 20141002
  Serious: No
  Sender: FDA-Public Use
  Company Number: US-ABBVIE-13P-163-1178277-00

PATIENT
  Age: 61 Year
  Sex: Male

DRUGS (14)
  1. HUMIRA [Suspect]
     Indication: CROHN^S DISEASE
     Dates: start: 20131109
  2. MULTAQ [Concomitant]
     Indication: ATRIAL FIBRILLATION
  3. ATENOLOL [Concomitant]
     Indication: HEART RATE ABNORMAL
  4. OMEPRAZOLE [Concomitant]
     Indication: GASTROINTESTINAL DISORDER
  5. OMEPRAZOLE [Concomitant]
     Indication: PROPHYLAXIS
  6. PLAVIX [Concomitant]
     Indication: TRANSIENT ISCHAEMIC ATTACK
  7. PLAVIX [Concomitant]
     Indication: TRIGEMINAL NERVE DISORDER
  8. SIMVASTATIN [Concomitant]
     Indication: BLOOD CHOLESTEROL ABNORMAL
  9. SIMVASTATIN [Concomitant]
     Indication: PROPHYLAXIS
  10. FISH OIL [Concomitant]
     Indication: PROPHYLAXIS
  11. MULTIVITAMIN [Concomitant]
     Indication: VITAMIN SUPPLEMENTATION
  12. COQ10 [Concomitant]
     Indication: MUSCLE SPASMS
  13. COQ10 [Concomitant]
     Indication: PROPHYLAXIS
  14. ASA [Concomitant]
     Indication: PROPHYLAXIS

REACTIONS (2)
  - Wrong technique in drug usage process [Recovered/Resolved]
  - Injection site haemorrhage [Recovered/Resolved]
